FAERS Safety Report 5077269-6 (Version None)
Quarter: 2006Q3

REPORT INFORMATION
  Report Type: 
  Country: None (occurrence: None)
  Receive Date: 20060810
  Receipt Date: 20060116
  Transmission Date: 20061208
  Serious: No
  Sender: FDA-Public Use
  Company Number: US-GLAXOSMITHKLINE-A0589419A

PATIENT
  Age: 48 Year
  Sex: Female

DRUGS (2)
  1. PAXIL [Suspect]
     Indication: PANIC DISORDER
     Dosage: 10MG ALTERNATE DAYS
     Route: 048
     Dates: start: 20051001, end: 20051001
  2. NO CONCURRENT MEDICATION [Concomitant]

REACTIONS (3)
  - AGITATION [None]
  - RESTLESSNESS [None]
  - VISUAL DISTURBANCE [None]
